FAERS Safety Report 7618791-5 (Version None)
Quarter: 2011Q3

REPORT INFORMATION
  Report Type: 
  Country: None (occurrence: None)
  Receive Date: 20110718
  Receipt Date: 20110713
  Transmission Date: 20111222
  Serious: Yes (Other)
  Sender: FDA-Public Use
  Company Number: US-PFIZER INC-2011158884

PATIENT
  Sex: Female
  Weight: 113.38 kg

DRUGS (5)
  1. BIOTIN [Concomitant]
     Dosage: 5000 MCG, UNK
  2. LASIX [Concomitant]
     Dosage: 40 MG, UNK
  3. COENZYME Q10 [Concomitant]
     Dosage: UNK
  4. LYRICA [Suspect]
     Indication: PAIN IN EXTREMITY
     Dosage: 150 MG, 2X/DAY
     Route: 048
     Dates: start: 20110601
  5. BENICAR HCT [Concomitant]
     Dosage: 40/12.5 MG, UNK

REACTIONS (1)
  - VISION BLURRED [None]
